FAERS Safety Report 12434372 (Version 2)
Quarter: 2017Q2

REPORT INFORMATION
  Report Type: Spontaneous
  Country: US (occurrence: US)
  Receive Date: 20160603
  Receipt Date: 20170601
  Transmission Date: 20170912
  Serious: No
  Sender: FDA-Public Use
  Company Number: US-OTSUKA-2016_006171

PATIENT
  Age: 87 Year
  Sex: Male

DRUGS (1)
  1. SAMSCA [Suspect]
     Indication: PRODUCT USED FOR UNKNOWN INDICATION
     Dosage: 15 MG, QD
     Route: 048
     Dates: start: 20151016, end: 20160310

REACTIONS (2)
  - Incorrect drug administration duration [Unknown]
  - Adverse event [Unknown]

NARRATIVE: CASE EVENT DATE: 20160310
